FAERS Safety Report 4635357-X (Version None)
Quarter: 2005Q2

REPORT INFORMATION
  Report Type: 
  Country: None (occurrence: None)
  Receive Date: 20050411
  Receipt Date: 20010704
  Transmission Date: 20051028
  Serious: No
  Sender: FDA-Public Use
  Company Number: 2863

PATIENT
  Age: 76 Year
  Sex: Male

DRUGS (1)
  1. ATRACURIUM BESYLATE [Suspect]
     Indication: ANAESTHESIA
     Dosage: 50 MG ONCE IV
     Route: 042
     Dates: start: 20010625, end: 20010625

REACTIONS (2)
  - DRUG EFFECT DECREASED [None]
  - RENAL FAILURE [None]
